FAERS Safety Report 10146335 (Version 1)
Quarter: 2014Q2

REPORT INFORMATION
  Report Type: Spontaneous
  Country: TR (occurrence: TR)
  Receive Date: 20140501
  Receipt Date: 20140501
  Transmission Date: 20141212
  Serious: Yes (Other)
  Sender: FDA-Public Use
  Company Number: TR-SA-2014SA054814

PATIENT
  Age: 24 Year
  Sex: Male

DRUGS (4)
  1. METHOTREXATE [Suspect]
     Indication: JUVENILE IDIOPATHIC ARTHRITIS
     Route: 065
  2. LEFLUNOMIDE [Suspect]
     Indication: JUVENILE IDIOPATHIC ARTHRITIS
     Dosage: DOSE: 100 MG/20 MG
     Route: 065
  3. DEFLAZACORT [Suspect]
     Indication: JUVENILE IDIOPATHIC ARTHRITIS
     Route: 065
  4. ADALIMUMAB [Suspect]
     Indication: JUVENILE IDIOPATHIC ARTHRITIS
     Dosage: ONCE TO TWO WEEKS
     Route: 058

REACTIONS (9)
  - Hepatitis B [Recovered/Resolved]
  - Asthenia [Recovered/Resolved]
  - Fatigue [Recovered/Resolved]
  - Hypophagia [Recovered/Resolved]
  - Alanine aminotransferase increased [Recovered/Resolved]
  - Aspartate aminotransferase increased [Recovered/Resolved]
  - Uveitis [Unknown]
  - Pyrexia [Unknown]
  - Hepatic fibrosis [Recovered/Resolved]
